APPROVED DRUG PRODUCT: LIPITOR
Active Ingredient: ATORVASTATIN CALCIUM
Strength: EQ 80MG BASE
Dosage Form/Route: TABLET;ORAL
Application: N020702 | Product #004 | TE Code: AB
Applicant: UPJOHN MANUFACTURING IRELAND UNLTD
Approved: Apr 7, 2000 | RLD: Yes | RS: Yes | Type: RX